FAERS Safety Report 8288890-6 (Version None)
Quarter: 2012Q2

REPORT INFORMATION
  Report Type: 
  Country: None (occurrence: None)
  Receive Date: 20120417
  Receipt Date: 20120409
  Transmission Date: 20120825
  Serious: Yes (Other)
  Sender: FDA-Public Use
  Company Number: ES-BAYER-2012-033840

PATIENT
  Age: 45 Year
  Sex: Female
  Weight: 63 kg

DRUGS (2)
  1. MIRENA [Suspect]
     Dosage: 20 MCG/24HR, CONT
     Route: 015
     Dates: start: 20060101
  2. CENTILUX SOLUCION , ENVASE CUENTAGOTAS DE 10 ML / [Suspect]
     Dosage: UNK
     Route: 047
     Dates: start: 20120309, end: 20120310

REACTIONS (1)
  - VIITH NERVE PARALYSIS [None]
